FAERS Safety Report 4716851-X (Version None)
Quarter: 2005Q3

REPORT INFORMATION
  Report Type: 
  Country: None (occurrence: None)
  Receive Date: 20050714
  Receipt Date: 20050628
  Transmission Date: 20060218
  Serious: Yes (Death)
  Sender: FDA-Public Use
  Company Number: 215284

PATIENT
  Age: 62 Year
  Sex: Female
  Weight: 61 kg

DRUGS (8)
  1. AVASTIN [Suspect]
     Indication: SMALL CELL LUNG CANCER STAGE UNSPECIFIED
     Dosage: 15 MG/KG, Q3W, INTRAVENOUS
     Route: 042
     Dates: start: 20050425, end: 20050516
  2. CISPLATIN [Suspect]
     Indication: SMALL CELL LUNG CANCER STAGE UNSPECIFIED
     Dosage: 30 MG/M2, 1/WEEK, INTRAVENOUS
     Route: 042
     Dates: start: 20050425, end: 20050516
  3. IRINOTECAN HCL [Suspect]
     Indication: SMALL CELL LUNG CANCER STAGE UNSPECIFIED
     Dosage: 65 MG/M2, 1/WEEK, INTRAVENOUS
     Route: 042
     Dates: start: 20050425, end: 20050516
  4. NEXIUM [Concomitant]
  5. HYZAAR [Concomitant]
  6. THEOPHYLLINE [Concomitant]
  7. IBUPROFEN [Concomitant]
  8. ACETAMINOPHEN [Concomitant]

REACTIONS (5)
  - HIATUS HERNIA [None]
  - MELAENA [None]
  - NAUSEA [None]
  - SUDDEN DEATH [None]
  - VOMITING [None]
